FAERS Safety Report 13825912 (Version 2)
Quarter: 2017Q3

REPORT INFORMATION
  Report Type: Spontaneous
  Country: US (occurrence: US)
  Receive Date: 20170802
  Receipt Date: 20170824
  Transmission Date: 20171127
  Serious: Yes (Other)
  Sender: FDA-Public Use
  Company Number: US-SA-2017SA138694

PATIENT
  Age: 67 Year
  Sex: Female
  Weight: 68.03 kg

DRUGS (5)
  1. SOLOSTAR [Suspect]
     Active Substance: DEVICE
     Dosage: DOSE:25 UNIT(S)
     Route: 051
     Dates: start: 201704
  2. LANTUS SOLOSTAR [Suspect]
     Active Substance: INSULIN GLARGINE
     Indication: TYPE 2 DIABETES MELLITUS
     Dosage: DOSE:25 UNIT(S)
     Route: 051
     Dates: start: 201704
  3. LANTUS SOLOSTAR [Suspect]
     Active Substance: INSULIN GLARGINE
     Indication: TYPE 2 DIABETES MELLITUS
     Route: 051
     Dates: start: 20161101
  4. INVOKANA [Concomitant]
     Active Substance: CANAGLIFLOZIN
     Route: 065
  5. SOLOSTAR [Suspect]
     Active Substance: DEVICE
     Route: 051

REACTIONS (2)
  - Cerebrovascular accident [Unknown]
  - Product use issue [Unknown]
